FAERS Safety Report 8563777-X (Version None)
Quarter: 2012Q3

REPORT INFORMATION
  Report Type: 
  Country: None (occurrence: None)
  Receive Date: 20120803
  Receipt Date: 20120730
  Transmission Date: 20120928
  Serious: Yes (Hospitalization)
  Sender: FDA-Public Use
  Company Number: US-AMGEN-USASP2012047533

PATIENT
  Age: 49 Year
  Sex: Female

DRUGS (1)
  1. ENBREL [Suspect]
     Indication: RHEUMATOID ARTHRITIS
     Dosage: 50 MG, QWK
     Dates: start: 19990201

REACTIONS (8)
  - COLITIS MICROSCOPIC [None]
  - ARTHROPATHY [None]
  - GALLBLADDER NON-FUNCTIONING [None]
  - MASS EXCISION [None]
  - FOOT OPERATION [None]
  - RHEUMATOID ARTHRITIS [None]
  - INSOMNIA [None]
  - PROCEDURAL PAIN [None]
